FAERS Safety Report 19745426 (Version 1)
Quarter: 2021Q3

REPORT INFORMATION
  Report Type: Spontaneous
  Country: US (occurrence: US)
  Receive Date: 20210824
  Receipt Date: 20210824
  Transmission Date: 20211014
  Serious: Yes (Hospitalization)
  Sender: FDA-Public Use
  Company Number: None

PATIENT
  Age: 82 Year
  Sex: Female

DRUGS (22)
  1. CETIRIZINE [Concomitant]
     Active Substance: CETIRIZINE HYDROCHLORIDE
     Dates: start: 20210810
  2. LOSARTAN. [Concomitant]
     Active Substance: LOSARTAN
     Dates: start: 20210810
  3. FUROSEMIDE. [Concomitant]
     Active Substance: FUROSEMIDE
     Dates: start: 20210816
  4. CYANOCOBALAM [Concomitant]
     Active Substance: CYANOCOBALAMIN
     Dates: start: 20210422
  5. SPIRONOLACTONE. [Concomitant]
     Active Substance: SPIRONOLACTONE
     Dates: start: 20210527
  6. XARELTO [Concomitant]
     Active Substance: RIVAROXABAN
     Dates: start: 20210810
  7. LEVOTHYROXINE. [Concomitant]
     Active Substance: LEVOTHYROXINE
     Dates: start: 20210810
  8. SUCRALFATE. [Concomitant]
     Active Substance: SUCRALFATE
     Dates: start: 20210810
  9. GABAPENTIN. [Concomitant]
     Active Substance: GABAPENTIN
     Dates: start: 20201217
  10. MONTELUKAST [Concomitant]
     Active Substance: MONTELUKAST SODIUM
     Dates: start: 20210810
  11. HUMIRA [Suspect]
     Active Substance: ADALIMUMAB
     Indication: CROHN^S DISEASE
     Dosage: ?          OTHER FREQUENCY:EVERY 2 WEEKS;?
     Route: 058
  12. CHLORHEX GLU SOLUTION [Concomitant]
     Dates: start: 20210810
  13. HYDROCORTISONE CREAM [Concomitant]
     Active Substance: HYDROCORTISONE
     Dates: start: 20210817
  14. OMPERAZOLE [Concomitant]
     Active Substance: OMEPRAZOLE
     Dates: start: 20210527
  15. BREO ELLIPTA [Concomitant]
     Active Substance: FLUTICASONE FUROATE\VILANTEROL TRIFENATATE
     Dates: start: 20210210
  16. CARVEDILOL. [Concomitant]
     Active Substance: CARVEDILOL
     Dates: start: 20210504
  17. SIMVASTATIN. [Concomitant]
     Active Substance: SIMVASTATIN
     Dates: start: 20210331
  18. HYDROXYX [Concomitant]
     Dates: start: 20210810
  19. ENALAPRIL [Concomitant]
     Active Substance: ENALAPRIL
     Dates: start: 20210120
  20. HUMIRA [Suspect]
     Active Substance: ADALIMUMAB
     Indication: COLITIS ULCERATIVE
     Dosage: ?          OTHER FREQUENCY:EVERY 2 WEEKS;?
     Route: 058
  21. QUETIAPINE. [Concomitant]
     Active Substance: QUETIAPINE
     Dates: start: 20210818
  22. SERTRALINE [Concomitant]
     Active Substance: SERTRALINE HYDROCHLORIDE
     Dates: start: 20210810

REACTIONS (2)
  - COVID-19 [None]
  - Therapy interrupted [None]

NARRATIVE: CASE EVENT DATE: 20210616
